FAERS Safety Report 9683504 (Version 2)
Quarter: 2014Q2

REPORT INFORMATION
  Report Type: Report from Study
  Country: US (occurrence: US)
  Receive Date: 20131112
  Receipt Date: 20140610
  Transmission Date: 20141212
  Serious: Yes (Other)
  Sender: FDA-Public Use
  Company Number: US-ROCHE-1297583

PATIENT
  Sex: Male

DRUGS (14)
  1. XELODA [Suspect]
     Indication: COLORECTAL CANCER
     Dosage: 3 TABLET MORNING AND EVENING
     Route: 048
  2. XELODA [Suspect]
     Dosage: TWO WEEKS ON, ONE WEEK OFF, 3 CYCLES
     Route: 048
     Dates: start: 201304, end: 201307
  3. XELODA [Suspect]
     Dosage: 2 WEEKS 14 DAYS ON 1 WEEK OFF
     Route: 048
     Dates: start: 2012
  4. AVASTIN [Suspect]
     Indication: COLORECTAL CANCER
     Route: 042
  5. AVASTIN [Suspect]
     Dosage: AS REQUIRED
     Route: 042
     Dates: start: 201304, end: 201307
  6. TURMERIC [Concomitant]
  7. GINGER [Concomitant]
  8. CINNAMON [Concomitant]
  9. PROBIOTIC (ENZYMES, INC) [Concomitant]
  10. VITAMIN B6 [Concomitant]
  11. OXALIPLATIN [Concomitant]
     Indication: COLORECTAL CANCER
     Dosage: CHEMOTHERAPY
     Route: 042
     Dates: start: 2012
  12. PROMETHAZINE [Concomitant]
     Indication: NAUSEA
     Dosage: 1/2 HOUR BEFORE XELODA
     Route: 048
  13. AMLODIPINE/BENAZEPRIL HYDROCHLORIDE [Concomitant]
     Indication: BLOOD PRESSURE
     Dosage: 5/20MG AT NOON AT LUNCHTIME
     Route: 048
  14. ERBITUX [Concomitant]

REACTIONS (3)
  - Metastases to lung [Not Recovered/Not Resolved]
  - Liver disorder [Not Recovered/Not Resolved]
  - Pneumonia [Recovered/Resolved]
